FAERS Safety Report 11087035 (Version 1)
Quarter: 2015Q2

REPORT INFORMATION
  Report Type: Spontaneous
  Country: US (occurrence: None)
  Receive Date: 20150501
  Receipt Date: 20150501
  Transmission Date: 20150821
  Serious: Yes (Other)
  Sender: FDA-Public Use
  Company Number: None

PATIENT
  Age: 80 Year
  Sex: Male

DRUGS (8)
  1. CALCIUM [Concomitant]
     Active Substance: CALCIUM
  2. ZOCOR [Concomitant]
     Active Substance: SIMVASTATIN
  3. IMBRUVICA [Suspect]
     Active Substance: IBRUTINIB
     Indication: CHRONIC LYMPHOCYTIC LEUKAEMIA
     Route: 048
     Dates: start: 20150305
  4. LOSARTAN [Concomitant]
     Active Substance: LOSARTAN
  5. ASPIRIN. [Concomitant]
     Active Substance: ASPIRIN
  6. ALLOPURINOL. [Concomitant]
     Active Substance: ALLOPURINOL
  7. PLAVIX [Concomitant]
     Active Substance: CLOPIDOGREL BISULFATE
  8. BACTRIM [Concomitant]
     Active Substance: SULFAMETHOXAZOLE\TRIMETHOPRIM

REACTIONS (1)
  - Basal cell carcinoma [None]

NARRATIVE: CASE EVENT DATE: 20150430
